FAERS Safety Report 20849405 (Version 2)
Quarter: 2022Q3

REPORT INFORMATION
  Report Type: Spontaneous
  Country: US (occurrence: US)
  Receive Date: 20220519
  Receipt Date: 20220812
  Transmission Date: 20221027
  Serious: No
  Sender: FDA-Public Use
  Company Number: US-PFIZER INC-202200712986

PATIENT
  Age: 43 Year
  Sex: Female
  Weight: 68.95 kg

DRUGS (4)
  1. XELJANZ [Suspect]
     Active Substance: TOFACITINIB CITRATE
     Indication: Rheumatoid arthritis
     Dosage: 5 MG, 2X/DAY (ONE IN THE MORNING ONE AT NIGHT WITH FOOD)
     Route: 048
     Dates: start: 20220511
  2. ESCITALOPRAM [Concomitant]
     Active Substance: ESCITALOPRAM OXALATE
     Indication: Anxiety
     Dosage: 10 MG
  3. GABAPENTIN [Concomitant]
     Active Substance: GABAPENTIN
     Indication: Swelling
     Dosage: 100 MG, 2X/DAY
     Dates: start: 202204
  4. METHOTREXATE SODIUM [Concomitant]
     Active Substance: METHOTREXATE SODIUM
     Dosage: UNK

REACTIONS (2)
  - Paraesthesia [Unknown]
  - Weight decreased [Unknown]
